FAERS Safety Report 10147209 (Version 1)
Quarter: 2014Q2

REPORT INFORMATION
  Report Type: Spontaneous
  Country: CA (occurrence: CA)
  Receive Date: 20140501
  Receipt Date: 20140501
  Transmission Date: 20141212
  Serious: Yes (Other)
  Sender: FDA-Public Use
  Company Number: CA-ROXANE LABORATORIES, INC.-2014-RO-00666RO

PATIENT
  Age: 70 Year
  Sex: Female
  Weight: 50 kg

DRUGS (4)
  1. PREDNISONE [Suspect]
     Indication: SLE ARTHRITIS
     Route: 065
  2. CALCIUM [Concomitant]
     Indication: OSTEOPOROSIS
     Route: 065
  3. CALCITONIN [Concomitant]
     Indication: OSTEOPOROSIS
     Route: 065
  4. VITAMIN D [Concomitant]
     Indication: OSTEOPOROSIS
     Route: 065

REACTIONS (5)
  - Fracture displacement [Recovered/Resolved]
  - Kyphosis [Recovered/Resolved]
  - Skin erosion [Unknown]
  - Cervical vertebral fracture [Recovered/Resolved]
  - Osteoporosis [Unknown]
